FAERS Safety Report 6889035-7 (Version None)
Quarter: 2010Q3

REPORT INFORMATION
  Report Type: 
  Country: None (occurrence: None)
  Receive Date: 20100730
  Receipt Date: 20071209
  Transmission Date: 20110219
  Serious: No
  Sender: FDA-Public Use
  Company Number: US-PFIZER INC-2007103757

PATIENT
  Sex: Female
  Weight: 59.87 kg

DRUGS (2)
  1. LIPITOR [Suspect]
     Indication: BLOOD CHOLESTEROL ABNORMAL
     Route: 048
     Dates: start: 20050501, end: 20071204
  2. ALL OTHER THERAPEUTIC PRODUCTS [Concomitant]
     Indication: HYSTERECTOMY

REACTIONS (2)
  - BACK PAIN [None]
  - NECK PAIN [None]
